FAERS Safety Report 5910023-9 (Version None)
Quarter: 2008Q4

REPORT INFORMATION
  Report Type: 
  Country: None (occurrence: None)
  Receive Date: 20081007
  Receipt Date: 20080730
  Transmission Date: 20090506
  Serious: Yes (Other)
  Sender: FDA-Public Use
  Company Number: US-ASTRAZENECA-2005UW19228

PATIENT
  Age: 68 Year
  Sex: Female
  Weight: 86.2 kg

DRUGS (8)
  1. ARIMIDEX [Suspect]
     Indication: BREAST CANCER FEMALE
     Route: 048
     Dates: start: 20050601
  2. ACCUPRIL [Concomitant]
  3. CARDURA [Concomitant]
  4. LOPRESSOR [Concomitant]
  5. ASPIRIN [Concomitant]
  6. PLAVIX [Concomitant]
  7. PRAVASTATIN [Concomitant]
  8. WELLBUTRIN [Concomitant]

REACTIONS (4)
  - ARTHRALGIA [None]
  - ASTHENIA [None]
  - HOT FLUSH [None]
  - MYOCARDIAL INFARCTION [None]
